FAERS Safety Report 16764586 (Version 3)
Quarter: 2019Q3

REPORT INFORMATION
  Report Type: Report from Study
  Country: BR (occurrence: BR)
  Receive Date: 20190902
  Receipt Date: 20190924
  Transmission Date: 20191005
  Serious: Yes (Disabling, Other)
  Sender: FDA-Public Use
  Company Number: PHHY2018BR063536

PATIENT
  Age: 73 Year
  Sex: Male
  Weight: 80 kg

DRUGS (2)
  1. COSENTYX [Suspect]
     Active Substance: SECUKINUMAB
     Indication: PSORIATIC ARTHROPATHY
     Dosage: 2 DF (PENS), QMO
     Route: 058
     Dates: start: 20180616
  2. COSENTYX [Suspect]
     Active Substance: SECUKINUMAB
     Dosage: 300 MG, UNK
     Route: 058
     Dates: start: 20180620

REACTIONS (7)
  - Prostate cancer [Recovered/Resolved]
  - Movement disorder [Unknown]
  - Urinary retention postoperative [Unknown]
  - Therapeutic product effect incomplete [Recovering/Resolving]
  - Dysuria [Not Recovered/Not Resolved]
  - Skin exfoliation [Unknown]
  - Pruritus [Recovering/Resolving]

NARRATIVE: CASE EVENT DATE: 20190227
